FAERS Safety Report 9972075 (Version 1)
Quarter: 2014Q1

REPORT INFORMATION
  Report Type: Report from Study
  Country: US (occurrence: US)
  Receive Date: 20140306
  Receipt Date: 20140306
  Transmission Date: 20141002
  Serious: No
  Sender: FDA-Public Use
  Company Number: US-ABBVIE-13P-163-1148492-00

PATIENT
  Age: 45 Year
  Sex: Female

DRUGS (10)
  1. HUMIRA [Suspect]
     Indication: CROHN^S DISEASE
     Dosage: LOADING DOSE
     Dates: start: 20130913, end: 20130913
  2. HUMIRA [Suspect]
  3. PREDNISONE [Suspect]
     Indication: CROHN^S DISEASE
     Dosage: TAPERING DOSE
     Route: 048
  4. ALBUTEROL [Suspect]
     Indication: PRODUCT USED FOR UNKNOWN INDICATION
  5. ESTRADIOL [Concomitant]
     Indication: HORMONE REPLACEMENT THERAPY
     Dosage: DAILY
     Route: 048
  6. MEDROXYPROGESTERONE [Concomitant]
     Indication: HORMONE REPLACEMENT THERAPY
     Route: 048
  7. DESVENLAFAXINE [Concomitant]
     Indication: ANXIETY
     Route: 048
  8. FOLIC ACID [Concomitant]
     Indication: SUPPLEMENTATION THERAPY
     Route: 048
  9. NEXIUM [Concomitant]
     Indication: GASTROOESOPHAGEAL REFLUX DISEASE
     Route: 048
  10. LEVSIN [Concomitant]
     Indication: IRRITABLE BOWEL SYNDROME
     Route: 060

REACTIONS (15)
  - Pain [Recovering/Resolving]
  - Breath sounds abnormal [Recovering/Resolving]
  - Oropharyngeal pain [Recovering/Resolving]
  - Asthenia [Recovering/Resolving]
  - Feeling jittery [Not Recovered/Not Resolved]
  - Wheezing [Recovering/Resolving]
  - White blood cell count increased [Recovering/Resolving]
  - Cough [Recovering/Resolving]
  - Insomnia [Recovering/Resolving]
  - Pyrexia [Recovering/Resolving]
  - Nasopharyngitis [Recovering/Resolving]
  - Dyspnoea [Recovering/Resolving]
  - Heart rate increased [Recovering/Resolving]
  - Tremor [Unknown]
  - Dyspnoea [Recovering/Resolving]
